FAERS Safety Report 5123552-5 (Version None)
Quarter: 2006Q3

REPORT INFORMATION
  Report Type: 
  Country: None (occurrence: None)
  Receive Date: 20060801
  Receipt Date: 20051221
  Transmission Date: 20061208
  Serious: Yes (Other)
  Sender: FDA-Public Use
  Company Number: 2005131157

PATIENT
  Age: 44 Year
  Sex: Female
  Weight: 73.9363 kg

DRUGS (5)
  1. CAMPTOSAR [Suspect]
     Indication: COLORECTAL CANCER
     Dosage: 280 MG, INTRAVENOUS
     Route: 042
     Dates: start: 20050914, end: 20050916
  2. LEUCOVORIN CALCIUM [Concomitant]
  3. FLUOROURACIL [Concomitant]
  4. AVASTIN [Concomitant]
  5. ALOXI [Concomitant]

REACTIONS (3)
  - DYSPNOEA [None]
  - PRURITUS [None]
  - RETCHING [None]
